FAERS Safety Report 6819131-1 (Version None)
Quarter: 2010Q2

REPORT INFORMATION
  Report Type: 
  Country: None (occurrence: None)
  Receive Date: 20100630
  Receipt Date: 20100618
  Transmission Date: 20101027
  Serious: Yes (Death)
  Sender: FDA-Public Use
  Company Number: 2010SCPR001546

PATIENT
  Age: 72 Year
  Sex: Female

DRUGS (1)
  1. MEGACE ES [Suspect]
     Indication: DRUG USE FOR UNKNOWN INDICATION
     Dosage: 625MG/5ML DAILY, ORAL
     Route: 048

REACTIONS (1)
  - NEOPLASM MALIGNANT [None]
